FAERS Safety Report 8983086 (Version 1)
Quarter: 2012Q4

REPORT INFORMATION
  Report Type: Report from Study
  Country: GB (occurrence: US)
  Receive Date: 20121223
  Receipt Date: 20121223
  Transmission Date: 20130627
  Serious: Yes (Hospitalization)
  Sender: FDA-Public Use
  Company Number: US-BRISTOL-MYERS SQUIBB COMPANY-15124472

PATIENT
  Age: 56 Year
  Sex: Male
  Weight: 70.2 kg

DRUGS (5)
  1. IPILIMUMAB [Suspect]
     Indication: MALIGNANT MELANOMA
     Dosage: 8-29Mar10,29Mar-19Apr10,10Apr-13May10
     Route: 042
     Dates: start: 20100308, end: 20100513
  2. BEVACIZUMAB [Suspect]
     Indication: MALIGNANT MELANOMA
     Route: 042
     Dates: start: 20100308, end: 20100513
  3. LISINOPRIL [Concomitant]
     Route: 048
  4. AMBIEN [Concomitant]
  5. ATENOLOL [Concomitant]
     Route: 048

REACTIONS (3)
  - Diarrhoea [Unknown]
  - Infection [Unknown]
  - Pneumonia [Unknown]
